FAERS Safety Report 8807569 (Version 1)
Quarter: 2012Q4

REPORT INFORMATION
  Report Type: 
  Country: AT (occurrence: AT)
  Receive Date: 20120925
  Receipt Date: 20120925
  Transmission Date: 20130627
  Serious: Yes (Other)
  Sender: FDA-Public Use
  Company Number: AT-PFIZER INC-2012233177

PATIENT
  Age: 74 Year
  Sex: Male

DRUGS (1)
  1. SORTIS [Suspect]
     Indication: BLOOD CHOLESTEROL INCREASED
     Dosage: 10 mg, UNK
     Route: 048
     Dates: start: 201109, end: 201202

REACTIONS (1)
  - Cataract [Not Recovered/Not Resolved]
